FAERS Safety Report 6803341-3 (Version None)
Quarter: 2010Q2

REPORT INFORMATION
  Report Type: 
  Country: None (occurrence: None)
  Receive Date: 20100628
  Receipt Date: 20100617
  Transmission Date: 20101027
  Serious: Yes (Hospitalization)
  Sender: FDA-Public Use
  Company Number: JP-ROCHE-703052

PATIENT
  Sex: Female

DRUGS (5)
  1. CAPECITABINE [Suspect]
     Indication: COLON CANCER
     Route: 048
     Dates: start: 20090910, end: 20090923
  2. CAPECITABINE [Interacting]
     Route: 048
     Dates: start: 20091001, end: 20091004
  3. CAPECITABINE [Interacting]
     Dosage: DOSE DECREASED
     Route: 048
     Dates: start: 20091012, end: 20091021
  4. CAPECITABINE [Interacting]
     Route: 048
     Dates: start: 20091029, end: 20091109
  5. WARFARIN POTASSIUM [Interacting]
     Dosage: DRUG REPORTED: WARFARIN
     Route: 048
     Dates: end: 20091009

REACTIONS (4)
  - DRUG INTERACTION [None]
  - PALMAR-PLANTAR ERYTHRODYSAESTHESIA SYNDROME [None]
  - PROTHROMBIN TIME SHORTENED [None]
  - RASH [None]
